FAERS Safety Report 16680134 (Version 1)
Quarter: 2019Q3

REPORT INFORMATION
  Report Type: Report from Study
  Country: US (occurrence: US)
  Receive Date: 20190807
  Receipt Date: 20190807
  Transmission Date: 20191004
  Serious: Yes (Death, Other)
  Sender: FDA-Public Use
  Company Number: US-TAKEDA-2018MPI011847

PATIENT
  Age: 45 Year
  Sex: Female
  Weight: 48 kg

DRUGS (2)
  1. REVLIMID [Concomitant]
     Active Substance: LENALIDOMIDE
     Route: 065
  2. IXAZOMIB [Suspect]
     Active Substance: IXAZOMIB
     Indication: PLASMA CELL MYELOMA
     Dosage: 4 MILLIGRAM
     Route: 048
     Dates: start: 20180629, end: 20180914

REACTIONS (2)
  - Cardiac arrest [Fatal]
  - Therapy change [Unknown]

NARRATIVE: CASE EVENT DATE: 20190801
